FAERS Safety Report 6805483-5 (Version None)
Quarter: 2010Q2

REPORT INFORMATION
  Report Type: 
  Country: None (occurrence: None)
  Receive Date: 20100628
  Receipt Date: 20071205
  Transmission Date: 20101027
  Serious: No
  Sender: FDA-Public Use
  Company Number: US-PFIZER INC-2007102225

PATIENT
  Age: 34 Year
  Sex: Female
  Weight: 61.4 kg

DRUGS (5)
  1. GEODON [Suspect]
     Indication: BIPOLAR DISORDER
     Dates: start: 20071001
  2. NEXIUM [Concomitant]
  3. MONTELUKAST SODIUM [Concomitant]
  4. OXYBUTYNIN CHLORIDE [Concomitant]
  5. VITAMINS [Concomitant]

REACTIONS (5)
  - BLOOD GLUCOSE DECREASED [None]
  - DRUG DOSE OMISSION [None]
  - FATIGUE [None]
  - HUNGER [None]
  - HYPOTENSION [None]
